FAERS Safety Report 14386672 (Version 2)
Quarter: 2018Q2

REPORT INFORMATION
  Report Type: Spontaneous
  Country: US (occurrence: US)
  Receive Date: 20180115
  Receipt Date: 20180626
  Transmission Date: 20180711
  Serious: Yes (Other)
  Sender: FDA-Public Use
  Company Number: US-SA-2017SA103013

PATIENT
  Age: 61 Year
  Sex: Female
  Weight: 65.7 kg

DRUGS (18)
  1. TAXOTERE [Suspect]
     Active Substance: DOCETAXEL
     Indication: BREAST CANCER
     Dosage: 129,QOW
     Route: 042
     Dates: start: 20160215, end: 20160215
  2. RETIN-A [Concomitant]
     Active Substance: TRETINOIN
     Dosage: UNK
     Dates: start: 20120101
  3. CYTOXAN [Concomitant]
     Active Substance: CYCLOPHOSPHAMIDE
     Dosage: 1056, QOW
     Dates: start: 20151215, end: 20151215
  4. LUNESTA [Concomitant]
     Active Substance: ESZOPICLONE
     Dosage: UNK
     Dates: start: 20171001
  5. CYTOXAN [Concomitant]
     Active Substance: CYCLOPHOSPHAMIDE
     Dosage: 1056, QOW
     Dates: start: 20151030, end: 20151030
  6. TAXOTERE [Suspect]
     Active Substance: DOCETAXEL
     Dosage: 129,QOW
     Route: 042
     Dates: start: 20160407, end: 20160407
  7. NEOSAR [Concomitant]
     Active Substance: CYCLOPHOSPHAMIDE
     Dosage: UNK
  8. ADRIAMYCIN [DOXORUBICIN] [Concomitant]
     Dosage: 106,QCY
     Route: 065
     Dates: start: 20150909, end: 20150909
  9. COREG [Concomitant]
     Active Substance: CARVEDILOL
  10. TAXOL [Concomitant]
     Active Substance: PACLITAXEL
     Dosage: UNK UNK,QCY
     Route: 065
     Dates: start: 20151125, end: 20151125
  11. NORCO [Concomitant]
     Active Substance: ACETAMINOPHEN\HYDROCODONE BITARTRATE
  12. ARIMIDEX [Concomitant]
     Active Substance: ANASTROZOLE
     Dosage: 1 MG,QD
     Route: 048
     Dates: start: 20160907
  13. CLARITINE [Concomitant]
     Active Substance: LORATADINE
     Dosage: UNK
     Dates: start: 20120101
  14. TAXOL [Concomitant]
     Active Substance: PACLITAXEL
     Dosage: UNK UNK,QCY
     Dates: start: 20151117, end: 20151117
  15. CRESTOR [Concomitant]
     Active Substance: ROSUVASTATIN CALCIUM
     Dosage: UNK
     Dates: start: 20120101
  16. LYRICA [Concomitant]
     Active Substance: PREGABALIN
  17. ADRIAMYCIN [DOXORUBICIN] [Concomitant]
     Dosage: 106,QCY
     Route: 065
     Dates: start: 20151028, end: 20151028
  18. TRIANT-HC [Concomitant]
     Dosage: UNK
     Dates: start: 20120101

REACTIONS (2)
  - Psychological trauma [Unknown]
  - Alopecia [Recovering/Resolving]

NARRATIVE: CASE EVENT DATE: 20161030
